FAERS Safety Report 4419779-8 (Version None)
Quarter: 2004Q3

REPORT INFORMATION
  Report Type: 
  Country: None (occurrence: None)
  Receive Date: 20040809
  Receipt Date: 20040309
  Transmission Date: 20050211
  Serious: Yes (Hospitalization, Other)
  Sender: FDA-Public Use
  Company Number: US-GLAXOSMITHKLINE-A0501944A

PATIENT
  Age: 92 Year
  Sex: Female

DRUGS (6)
  1. PAXIL [Suspect]
     Indication: DEPRESSION
     Dosage: 15MG PER DAY
     Route: 048
     Dates: start: 20020101
  2. ARICEPT [Concomitant]
  3. AMBIEN [Concomitant]
  4. ALLEGRA [Concomitant]
  5. BETAPACE [Concomitant]
  6. COMBIVENT [Concomitant]

REACTIONS (3)
  - ADVERSE EVENT [None]
  - CONVULSION [None]
  - TREMOR [None]
